FAERS Safety Report 23955368 (Version 1)
Quarter: 2024Q2

REPORT INFORMATION
  Report Type: Spontaneous
  Country: HN (occurrence: HN)
  Receive Date: 20240610
  Receipt Date: 20240610
  Transmission Date: 20240716
  Serious: Yes (Other)
  Sender: FDA-Public Use
  Company Number: HN-002147023-NVSC2024HN119276

PATIENT
  Sex: Male

DRUGS (1)
  1. GLIVEC [Suspect]
     Active Substance: IMATINIB MESYLATE
     Indication: Chronic myeloid leukaemia
     Dosage: 200 MG, (2X100M G)
     Route: 065

REACTIONS (5)
  - Carditis [Unknown]
  - Prostate tenderness [Unknown]
  - Inflammation [Unknown]
  - Gait disturbance [Unknown]
  - Dyspnoea [Unknown]
